FAERS Safety Report 4455625-4 (Version None)
Quarter: 2004Q3

REPORT INFORMATION
  Report Type: 
  Country: None (occurrence: None)
  Receive Date: 20040917
  Receipt Date: 20040903
  Transmission Date: 20050211
  Serious: No
  Sender: FDA-Public Use
  Company Number: 04H-087-0272500-00

PATIENT
  Age: 10 Year
  Sex: Male
  Weight: 18 kg

DRUGS (7)
  1. LIDOCAINE HCL [Suspect]
     Indication: ANAESTHESIA
     Dosage: 7 ML, ONCE, INJECTION
  2. SEVOFLURANE [Suspect]
     Indication: ANAESTHESIA
     Dosage: INHALATIN
     Route: 055
  3. OXYGEN [Concomitant]
  4. NITROUS OXIDE [Concomitant]
  5. FENTANYL [Concomitant]
  6. VECURONIUM BROMIDE [Concomitant]
  7. ISOFLURANE [Concomitant]

REACTIONS (4)
  - ATRIOVENTRICULAR BLOCK COMPLETE [None]
  - DRUG INEFFECTIVE [None]
  - HYPOTENSION [None]
  - PROCEDURAL COMPLICATION [None]
